FAERS Safety Report 5648338-4 (Version None)
Quarter: 2008Q1

REPORT INFORMATION
  Report Type: 
  Country: None (occurrence: None)
  Receive Date: 20080203
  Receipt Date: 20080203
  Transmission Date: 20080703
  Serious: Yes (Other)
  Sender: FDA-Public Use
  Company Number: None

PATIENT
  Sex: Male
  Weight: 76.2043 kg

DRUGS (6)
  1. BUDEPRION XL 300MG TEVA [Suspect]
     Indication: ATTENTION DEFICIT/HYPERACTIVITY DISORDER
     Dosage: 300 MG QD PO
     Route: 048
     Dates: start: 20070122, end: 20071022
  2. BUDEPRION XL 300MG TEVA [Suspect]
     Indication: DYSTHYMIC DISORDER
     Dosage: 300 MG QD PO
     Route: 048
     Dates: start: 20070122, end: 20071022
  3. BUDEPRION XL 300MG TEVA [Suspect]
     Indication: ATTENTION DEFICIT/HYPERACTIVITY DISORDER
     Dosage: 300 MG QD PO
     Route: 048
     Dates: start: 20071222, end: 20080222
  4. BUDEPRION XL 300MG TEVA [Suspect]
     Indication: DYSTHYMIC DISORDER
     Dosage: 300 MG QD PO
     Route: 048
     Dates: start: 20071222, end: 20080222
  5. ADDERALL 10 [Concomitant]
  6. L-TYROSINE [Concomitant]

REACTIONS (4)
  - AFFECTIVE DISORDER [None]
  - INSOMNIA [None]
  - PHARMACEUTICAL PRODUCT COMPLAINT [None]
  - SLEEP DISORDER [None]
